FAERS Safety Report 7565869-0 (Version None)
Quarter: 2011Q2

REPORT INFORMATION
  Report Type: 
  Country: None (occurrence: None)
  Receive Date: 20110623
  Receipt Date: 20110617
  Transmission Date: 20111010
  Serious: No
  Sender: FDA-Public Use
  Company Number: US-PFIZER INC-2011131191

PATIENT

DRUGS (1)
  1. ADVIL LIQUI-GELS [Suspect]
     Dosage: 1 TABLET IN THE EVENING

REACTIONS (1)
  - DRUG INEFFECTIVE [None]
